FAERS Safety Report 4403630-6 (Version None)
Quarter: 2004Q3

REPORT INFORMATION
  Report Type: 
  Country: None (occurrence: None)
  Receive Date: 20040715
  Receipt Date: 20040621
  Transmission Date: 20050211
  Serious: Yes (Disabling, Other)
  Sender: FDA-Public Use
  Company Number: 2003-06305

PATIENT
  Age: 42 Year
  Sex: Male
  Weight: 75.2971 kg

DRUGS (4)
  1. EMTRIVA [Suspect]
     Indication: HIV INFECTION
     Dosage: 200 MG, ONCE A DAY, ORAL
     Route: 048
     Dates: start: 20031014, end: 20031024
  2. VIREAD [Suspect]
     Indication: HIV INFECTION
     Dosage: 300 MG, ONCE A DAY, ORAL
     Route: 048
     Dates: start: 20030206, end: 20031024
  3. VIRAMUNE [Concomitant]
     Indication: HIV INFECTION
     Dosage: 200 MG, ONCE A DAY, ORAL
     Dates: start: 20031014, end: 20031024
  4. VIDEX EC [Concomitant]

REACTIONS (6)
  - ALANINE AMINOTRANSFERASE INCREASED [None]
  - ASPARTATE AMINOTRANSFERASE INCREASED [None]
  - FATIGUE [None]
  - OEDEMA [None]
  - PYREXIA [None]
  - RASH [None]
